FAERS Safety Report 18252459 (Version 1)
Quarter: 2020Q3

REPORT INFORMATION
  Report Type: Spontaneous
  Country: BG (occurrence: BG)
  Receive Date: 20200910
  Receipt Date: 20200910
  Transmission Date: 20201103
  Serious: Yes (Other)
  Sender: FDA-Public Use
  Company Number: BG-LUPIN PHARMACEUTICALS INC.-2020-05676

PATIENT
  Age: 71 Year
  Sex: Female

DRUGS (2)
  1. DORZOLAMIDE AND TIMOLOL EYE DROPS, SOLUTION [Suspect]
     Active Substance: DORZOLAMIDE HYDROCHLORIDE\TIMOLOL MALEATE
     Indication: EXFOLIATION GLAUCOMA
     Dosage: UNK
     Route: 047
     Dates: start: 2015
  2. BIMATOPROST. [Suspect]
     Active Substance: BIMATOPROST
     Indication: EXFOLIATION GLAUCOMA
     Dosage: UNK
     Route: 047
     Dates: start: 2015

REACTIONS (3)
  - Choroidal effusion [Recovered/Resolved]
  - Medication error [Unknown]
  - Choroidal detachment [Recovered/Resolved]
